FAERS Safety Report 8620191 (Version 3)
Quarter: 2013Q3

REPORT INFORMATION
  Report Type: Spontaneous
  Country: US (occurrence: US)
  Receive Date: 20120618
  Receipt Date: 20130814
  Transmission Date: 20140515
  Serious: Yes (Other)
  Sender: FDA-Public Use
  Company Number: US-ASTRAZENECA-2012SE38789

PATIENT
  Age: 52 Year
  Sex: Male

DRUGS (2)
  1. SEROQUEL XR [Suspect]
     Route: 048
  2. SEROQUEL XR [Suspect]
     Route: 048

REACTIONS (4)
  - Blindness [Unknown]
  - Adverse event [Unknown]
  - Malaise [Unknown]
  - Drug dose omission [Unknown]
